FAERS Safety Report 5941642-1 (Version None)
Quarter: 2008Q4

REPORT INFORMATION
  Report Type: 
  Country: None (occurrence: None)
  Receive Date: 20081031
  Receipt Date: 20081024
  Transmission Date: 20090506
  Serious: Yes (Other)
  Sender: FDA-Public Use
  Company Number: 2008SP018540

PATIENT
  Age: 85 Year
  Sex: Female

DRUGS (5)
  1. MIRALAX [Suspect]
     Indication: CONSTIPATION
     Dosage: ;QD;PO, ;QPM;PO
     Route: 048
     Dates: start: 20080101
  2. MIRALAX [Suspect]
     Indication: CONSTIPATION
     Dosage: ;QD;PO, ;QPM;PO
     Route: 048
     Dates: start: 20080901
  3. DICYCLOMINE [Concomitant]
  4. ZOCOR [Concomitant]
  5. DIAZIDE [Concomitant]

REACTIONS (2)
  - FAECES DISCOLOURED [None]
  - ULCER HAEMORRHAGE [None]
